FAERS Safety Report 6496961-X (Version None)
Quarter: 2009Q4

REPORT INFORMATION
  Report Type: 
  Country: None (occurrence: None)
  Receive Date: 20091215
  Receipt Date: 20081107
  Transmission Date: 20100525
  Serious: No
  Sender: FDA-Public Use
  Company Number: A0755602A

PATIENT
  Age: 61 Year
  Sex: Male

DRUGS (3)
  1. AVODART [Suspect]
     Indication: BENIGN PROSTATIC HYPERPLASIA
     Dosage: .5MG PER DAY
     Route: 048
     Dates: start: 20071101
  2. BENICAR [Concomitant]
  3. VYTORIN [Concomitant]

REACTIONS (3)
  - DRUG INEFFECTIVE [None]
  - DYSURIA [None]
  - INCORRECT STORAGE OF DRUG [None]
